FAERS Safety Report 9191558 (Version 2)
Quarter: 2013Q2

REPORT INFORMATION
  Report Type: Report from Study
  Country: US (occurrence: US)
  Receive Date: 20130326
  Receipt Date: 20130409
  Transmission Date: 20140414
  Serious: Yes (Death, Hospitalization)
  Sender: FDA-Public Use
  Company Number: US-ACTELION-A-US2012-73017

PATIENT
  Age: 56 Year
  Sex: Female

DRUGS (5)
  1. VELETRI [Suspect]
     Indication: PULMONARY ARTERIAL HYPERTENSION
     Dosage: 15.5 NG/KG, PER MIN
     Route: 042
     Dates: start: 20110825
  2. VELETRI [Suspect]
     Dosage: 17 NG/KG, PER MIN
     Route: 042
     Dates: end: 20130318
  3. ADCIRCA [Concomitant]
  4. COUMADIN [Concomitant]
  5. SILDENAFIL [Concomitant]

REACTIONS (6)
  - Pulmonary hypertension [Fatal]
  - Dyspnoea [Unknown]
  - Nausea [Unknown]
  - Headache [Unknown]
  - Cough [Unknown]
  - Vomiting [Unknown]
